FAERS Safety Report 14058032 (Version 2)
Quarter: 2018Q1

REPORT INFORMATION
  Report Type: Spontaneous
  Country: US (occurrence: US)
  Receive Date: 20171006
  Receipt Date: 20180201
  Transmission Date: 20180508
  Serious: No
  Sender: FDA-Public Use
  Company Number: US-LUNDBECK-DKLU2027664

PATIENT
  Sex: Male
  Weight: 60 kg

DRUGS (6)
  1. NORTHERA [Suspect]
     Active Substance: DROXIDOPA
     Indication: ORTHOSTATIC HYPOTENSION
     Route: 048
     Dates: start: 2015
  2. TOPIRAMATE. [Concomitant]
     Active Substance: TOPIRAMATE
     Indication: SEIZURE
     Route: 065
  3. GABAPENTIN. [Concomitant]
     Active Substance: GABAPENTIN
     Indication: AUTONOMIC NERVOUS SYSTEM IMBALANCE
     Route: 065
  4. HUMIRA [Concomitant]
     Active Substance: ADALIMUMAB
     Indication: PSORIATIC ARTHROPATHY
     Route: 058
     Dates: start: 20170306
  5. ZENPEP [Concomitant]
     Active Substance: PANCRELIPASE AMYLASE\PANCRELIPASE LIPASE\PANCRELIPASE PROTEASE
     Indication: IRRITABLE BOWEL SYNDROME
     Route: 065
  6. TRAZODONE [Concomitant]
     Active Substance: TRAZODONE HYDROCHLORIDE
     Indication: PRODUCT USED FOR UNKNOWN INDICATION
     Route: 065

REACTIONS (2)
  - Decubitus ulcer [Recovering/Resolving]
  - Peripheral swelling [Not Recovered/Not Resolved]

NARRATIVE: CASE EVENT DATE: 2015
